FAERS Safety Report 6393362-X (Version None)
Quarter: 2009Q4

REPORT INFORMATION
  Report Type: 
  Country: None (occurrence: None)
  Receive Date: 20091008
  Receipt Date: 20090928
  Transmission Date: 20100525
  Serious: Yes (Other)
  Sender: FDA-Public Use
  Company Number: FR-PFIZER INC-2009271005

PATIENT
  Age: 62 Year

DRUGS (9)
  1. MARAVIROC [Suspect]
     Indication: HIV INFECTION
     Dosage: 150 MG, 2X/DAY
     Route: 048
     Dates: start: 20051117
  2. EPIVIR [Concomitant]
     Dosage: UNK
     Route: 048
     Dates: start: 20011030
  3. VIREAD [Concomitant]
     Dosage: UNK
     Route: 048
     Dates: start: 20040923
  4. KALETRA [Concomitant]
     Dosage: UNK
     Route: 048
     Dates: start: 20051117
  5. ISENTRESS [Concomitant]
     Dosage: UNK
     Route: 048
     Dates: start: 20081113
  6. STILNOX [Concomitant]
     Dosage: UNK
     Route: 048
  7. DOLIPRANE [Concomitant]
     Dosage: UNK
  8. LODOZ [Concomitant]
     Dosage: UNK
     Route: 048
     Dates: end: 20090801
  9. KALEORID [Concomitant]
     Dosage: UNK
     Dates: start: 20090812

REACTIONS (1)
  - BREAST CANCER METASTATIC [None]
